FAERS Safety Report 4589706-1 (Version None)
Quarter: 2005Q1

REPORT INFORMATION
  Report Type: 
  Country: None (occurrence: None)
  Receive Date: 20050217
  Receipt Date: 20050120
  Transmission Date: 20050727
  Serious: Yes (Life-Threatening, Hospitalization)
  Sender: FDA-Public Use
  Company Number: 2005AP00370

PATIENT
  Age: 8 Year
  Sex: Female
  Weight: 14.9687 kg

DRUGS (1)
  1. PULMICORT [Suspect]
     Indication: ASTHMA
     Dosage: 200 UG IM
     Route: 030
     Dates: start: 20041101

REACTIONS (2)
  - HERPES VIRUS INFECTION [None]
  - RASH GENERALISED [None]
